FAERS Safety Report 18973352 (Version 1)
Quarter: 2021Q1

REPORT INFORMATION
  Report Type: Spontaneous
  Country: US (occurrence: US)
  Receive Date: 20210305
  Receipt Date: 20210305
  Transmission Date: 20210420
  Serious: Yes (Hospitalization)
  Sender: FDA-Public Use
  Company Number: US-PFIZER INC-2021236033

PATIENT
  Age: 56 Year
  Sex: Female

DRUGS (4)
  1. IBRANCE [Suspect]
     Active Substance: PALBOCICLIB
     Indication: BREAST CANCER FEMALE
     Dosage: 75 MG, CYCLIC, (21 DAYS ON, 7 DAYS OFF)
     Route: 048
     Dates: start: 2018
  2. ADVIL [Concomitant]
     Active Substance: IBUPROFEN
  3. FASLODEX [Concomitant]
     Active Substance: FULVESTRANT
  4. HYDROCHLOROTHIAZIDE. [Concomitant]
     Active Substance: HYDROCHLOROTHIAZIDE

REACTIONS (1)
  - Thrombosis [Recovered/Resolved]
